FAERS Safety Report 8309211 (Version 4)
Quarter: 2012Q4

REPORT INFORMATION
  Report Type: Report from Study
  Country: US (occurrence: US)
  Receive Date: 20111223
  Receipt Date: 20120911
  Transmission Date: 20130627
  Serious: Yes (Other)
  Sender: FDA-Public Use
  Company Number: US-AMGEN-USACT2011066607

PATIENT
  Age: 17 Year
  Sex: Female
  Weight: 72.5 kg

DRUGS (2)
  1. ETANERCEPT [Suspect]
     Indication: JUVENILE ARTHRITIS
     Dosage: UNK
     Dates: start: 200704, end: 200803
  2. METHOTREXATE SODIUM [Concomitant]
     Indication: JUVENILE ARTHRITIS
     Dosage: UNK
     Dates: start: 200611, end: 200908

REACTIONS (1)
  - Thyroid cancer [Recovered/Resolved]
